FAERS Safety Report 9753822 (Version 1)
Quarter: 2013Q4

REPORT INFORMATION
  Report Type: Spontaneous
  Country: CA (occurrence: None)
  Receive Date: 20131211
  Receipt Date: 20131211
  Transmission Date: 20140711
  Serious: Yes (Hospitalization)
  Sender: FDA-Public Use
  Company Number: UTC-029785

PATIENT
  Age: 60 Year
  Sex: Female

DRUGS (2)
  1. REMODULIN [Suspect]
     Dosage: 1 IN 1 MIN
     Route: 058
     Dates: start: 20120605, end: 20130313
  2. OXYGEN (UNKNOWN) [Concomitant]

REACTIONS (1)
  - Respiratory tract infection [None]
